FAERS Safety Report 5734859-2 (Version None)
Quarter: 2008Q2

REPORT INFORMATION
  Report Type: 
  Country: None (occurrence: None)
  Receive Date: 20080512
  Receipt Date: 20080506
  Transmission Date: 20081010
  Serious: Yes (Other)
  Sender: FDA-Public Use
  Company Number: A0719385A

PATIENT
  Age: 8 Year
  Sex: Female
  Weight: 31.8 kg

DRUGS (8)
  1. ADVAIR DISKUS 100/50 [Suspect]
     Indication: ASTHMA
     Dosage: 1PUFF TWICE PER DAY
     Route: 055
     Dates: start: 20061201, end: 20070801
  2. ADVAIR DISKUS 100/50 [Suspect]
     Dosage: 2PUFF TWICE PER DAY
     Route: 055
     Dates: start: 20070801, end: 20080301
  3. SINGULAIR [Concomitant]
     Dosage: 5MG PER DAY
     Route: 048
  4. ALBUTEROL [Concomitant]
     Dosage: 2PUFF AS REQUIRED
     Route: 055
  5. PREVACID [Concomitant]
     Dosage: 30MG PER DAY
     Route: 048
  6. NASONEX [Concomitant]
     Dosage: 2SPR UNKNOWN
     Route: 045
  7. ASTELIN [Concomitant]
     Route: 045
  8. ZYRTEC [Concomitant]
     Dosage: 10MG PER DAY
     Route: 048

REACTIONS (6)
  - ASTHMA [None]
  - CUSHINGOID [None]
  - EMOTIONAL DISTRESS [None]
  - INCREASED APPETITE [None]
  - KYPHOSIS [None]
  - WEIGHT INCREASED [None]
